FAERS Safety Report 23033481 (Version 1)
Quarter: 2023Q4

REPORT INFORMATION
  Report Type: Spontaneous
  Country: US (occurrence: None)
  Receive Date: 20231004
  Receipt Date: 20231004
  Transmission Date: 20240110
  Serious: Yes (Disabling)
  Sender: FDA-Public Use
  Company Number: None

PATIENT
  Age: 68 Year
  Sex: Female
  Weight: 68.85 kg

DRUGS (13)
  1. UNSPECIFIED INGREDIENT [Suspect]
     Active Substance: UNSPECIFIED INGREDIENT
     Dosage: 4 SPRAYS NASAL SPRAY AS NEEDED ?
     Route: 050
     Dates: start: 20190308, end: 20190322
  2. UNSPECIFIED INGREDIENT [Suspect]
     Active Substance: UNSPECIFIED INGREDIENT
     Indication: Dysbiosis
     Dosage: ?1  TEASPOON 3 TIMES A DAY ORAL
     Route: 048
  3. SYNTHROID [Concomitant]
     Active Substance: LEVOTHYROXINE SODIUM
  4. ZOCOR [Concomitant]
     Active Substance: SIMVASTATIN
  5. ALBUTEROL [Concomitant]
     Active Substance: ALBUTEROL
  6. VALACYCLOVIR [Concomitant]
     Active Substance: VALACYCLOVIR HYDROCHLORIDE
  7. BREO ELLIPTA [Concomitant]
     Active Substance: FLUTICASONE FUROATE\VILANTEROL TRIFENATATE
  8. Co-enyme Q10 [Concomitant]
  9. CYANOCOBALAMIN\DEXPANTHENOL\NIACINAMIDE\PYRIDOXINE HYDROCHLORIDE\RIBOF [Concomitant]
     Active Substance: CYANOCOBALAMIN\DEXPANTHENOL\NIACINAMIDE\PYRIDOXINE HYDROCHLORIDE\RIBOFLAVIN 5^-PHOSPHATE SODIUM\THIA
  10. VITAMIN D3 [Concomitant]
     Active Substance: CHOLECALCIFEROL
  11. Citicholine [Concomitant]
  12. BIOSIL [Concomitant]
  13. Viviscal [Concomitant]

REACTIONS (3)
  - Nasal congestion [None]
  - Sinusitis [None]
  - Dyspnoea [None]

NARRATIVE: CASE EVENT DATE: 20190308
